FAERS Safety Report 10944751 (Version 3)
Quarter: 2015Q2

REPORT INFORMATION
  Report Type: Spontaneous
  Country: US (occurrence: None)
  Receive Date: 20150319
  Receipt Date: 20150403
  Transmission Date: 20150821
  Serious: Yes (Death, Other)
  Sender: FDA-Public Use
  Company Number: ADR-2015-00528

PATIENT
  Age: 51 Year
  Sex: Male

DRUGS (1)
  1. LIORESAL [Suspect]
     Active Substance: BACLOFEN
     Indication: MUSCLE SPASTICITY

REACTIONS (4)
  - Progressive multiple sclerosis [None]
  - Urinary tract infection [None]
  - Disease progression [None]
  - Condition aggravated [None]
